FAERS Safety Report 20034275 (Version 2)
Quarter: 2021Q4

REPORT INFORMATION
  Report Type: Spontaneous
  Country: PT (occurrence: PT)
  Receive Date: 20211104
  Receipt Date: 20211116
  Transmission Date: 20220303
  Serious: Yes (Hospitalization, Other)
  Sender: FDA-Public Use
  Company Number: PT-CELLTRION HEALTHCARE HUNGARY KFT-2021PT010342

PATIENT
  Age: 27 Year
  Sex: Female

DRUGS (6)
  1. METHOTREXATE [Suspect]
     Active Substance: METHOTREXATE
     Indication: Crohn^s disease
     Dosage: UNK
  2. METHOTREXATE [Suspect]
     Active Substance: METHOTREXATE
     Dosage: 7.5 MILLIGRAM
  3. INFLIXIMAB [Suspect]
     Active Substance: INFLIXIMAB
     Indication: Crohn^s disease
     Dosage: 10 MILLIGRAM/KILOGRAM (10 MG/KG, THE INTERVAL TO 6/6 WEEKS)
     Route: 042
  4. INFLIXIMAB [Suspect]
     Active Substance: INFLIXIMAB
     Dosage: 5 MILLIGRAM/KILOGRAM
     Route: 042
  5. INFLIXIMAB [Suspect]
     Active Substance: INFLIXIMAB
     Dosage: 5 MILLIGRAM/KILOGRAM
  6. MERCAPTOPURINE [Suspect]
     Active Substance: MERCAPTOPURINE
     Indication: Crohn^s disease
     Dosage: UNK (IN COMBINATION WITH INFLXIMAB)

REACTIONS (13)
  - Crohn^s disease [Recovered/Resolved]
  - Perirectal abscess [Unknown]
  - Anal abscess [Unknown]
  - Off label use [Unknown]
  - Product use issue [Unknown]
  - Proctalgia [Unknown]
  - Oedema [Unknown]
  - Pseudopolyp [Unknown]
  - Malnutrition [Unknown]
  - Mucosal ulceration [Unknown]
  - Purulent discharge [Unknown]
  - Pyrexia [Unknown]
  - Overdose [Unknown]

NARRATIVE: CASE EVENT DATE: 20140301
